FAERS Safety Report 8546679 (Version 4)
Quarter: 2012Q4

REPORT INFORMATION
  Report Type: 
  Country: US (occurrence: US)
  Receive Date: 20120504
  Receipt Date: 20120918
  Transmission Date: 20130627
  Serious: Yes (Other)
  Sender: FDA-Public Use
  Company Number: US-PFIZER INC-2012109241

PATIENT
  Age: 65 Year
  Sex: Male
  Weight: 88.44 kg

DRUGS (8)
  1. CHANTIX [Suspect]
     Indication: SMOKING CESSATION THERAPY
     Dosage: 0.5 mg, 1x/day
     Route: 048
     Dates: start: 201203, end: 201204
  2. CHANTIX [Suspect]
     Dosage: 1 mg, 2x/day
     Route: 048
     Dates: start: 201204, end: 20120501
  3. SERTRALINE [Concomitant]
     Dosage: 50 mg
  4. DOCUSATE [Concomitant]
     Indication: CONSTIPATION
     Dosage: UNK
  5. SENNA [Concomitant]
     Indication: CONSTIPATION
     Dosage: UNK
  6. GABAPENTIN [Concomitant]
     Dosage: 300 mg, 3x/day
  7. TAPAZOLE [Concomitant]
     Dosage: UNK
  8. MORPHINE SULFATE [Concomitant]
     Dosage: UNK

REACTIONS (5)
  - Rash generalised [Recovered/Resolved]
  - Genital rash [Recovered/Resolved]
  - Scratch [Recovered/Resolved]
  - Pruritus [Recovered/Resolved]
  - Swelling [Recovered/Resolved]
